FAERS Safety Report 5901367-5 (Version None)
Quarter: 2008Q3

REPORT INFORMATION
  Report Type: 
  Country: None (occurrence: None)
  Receive Date: 20080929
  Receipt Date: 20080924
  Transmission Date: 20090109
  Serious: Yes (Hospitalization)
  Sender: FDA-Public Use
  Company Number: SE-ABBOTT-08P-150-0471723-00

PATIENT
  Age: 60 Year
  Sex: Female
  Weight: 80.1 kg

DRUGS (16)
  1. ZEMPLAR [Suspect]
     Indication: HYPERPARATHYROIDISM
     Dosage: 5 MCG/ML, 10 MCG/WEEK ON MONDAYS
     Route: 050
     Dates: start: 20080204, end: 20080723
  2. WARAN WHITE TABLETS [Concomitant]
     Indication: DRUG USE FOR UNKNOWN INDICATION
     Route: 048
  3. OMEPRAZOLE SODIUM [Concomitant]
     Indication: DRUG USE FOR UNKNOWN INDICATION
     Route: 048
  4. LOPERAMIDE HYDROCHLORIDE [Concomitant]
     Indication: ANTIDIARRHOEAL SUPPORTIVE CARE
     Dosage: 2MG CAPSULES, 1 CAP POST-DIARRHEA, MAX 8 CAPSULES PER DAY
     Route: 048
  5. ENALAPRIL MALEATE [Concomitant]
     Indication: DRUG USE FOR UNKNOWN INDICATION
     Dosage: NOT ON DIALYSIS DAYS
     Route: 048
  6. CINACALCET [Concomitant]
     Indication: DRUG USE FOR UNKNOWN INDICATION
     Route: 048
  7. ALLOPURINOL [Concomitant]
     Indication: GOUT
     Route: 048
  8. ALLOPURINOL [Concomitant]
     Indication: PROPHYLAXIS
  9. SEVELAMER [Concomitant]
     Indication: DRUG USE FOR UNKNOWN INDICATION
     Route: 048
  10. CROMOLYN SODIUM [Concomitant]
     Indication: HYPERSENSITIVITY
     Route: 048
  11. CROMOLYN SODIUM [Concomitant]
     Indication: PROPHYLAXIS
  12. CEFUROXIME [Concomitant]
     Indication: DRUG USE FOR UNKNOWN INDICATION
     Route: 042
  13. ENOXAPARIN SODIUM [Concomitant]
     Indication: DRUG USE FOR UNKNOWN INDICATION
     Dosage: 10000 IU/ML, 2500 IU DAILY AT THE START OF DIALYSIS
     Route: 050
  14. SACCHARATED IRON OXIDE [Concomitant]
     Indication: DRUG USE FOR UNKNOWN INDICATION
     Dosage: 20MG/ML, 5ML WEEKLY ON MON COINCIDENT WITH DIALYSIS
     Route: 050
  15. EPOETIN ALFA [Concomitant]
     Indication: DRUG USE FOR UNKNOWN INDICATION
     Dosage: 10000IU/ML, 600IU TWICE WEEKLY ON MON AND FRI COINCIDENT WITH DIALYSIS
  16. ENOXAPARIN SODIUM [Concomitant]
     Dosage: 5000IU/ DOSE (0.2 ML), 1 DOSE GIVEN ON NON-DIALYSIS DAYS.
     Route: 058

REACTIONS (4)
  - GALLBLADDER DISORDER [None]
  - INFECTION [None]
  - MALAISE [None]
  - PYREXIA [None]
